FAERS Safety Report 18549283 (Version 9)
Quarter: 2022Q1

REPORT INFORMATION
  Report Type: Report from Study
  Country: DE (occurrence: DE)
  Receive Date: 20201126
  Receipt Date: 20220301
  Transmission Date: 20220423
  Serious: Yes (Hospitalization, Other)
  Sender: FDA-Public Use
  Company Number: DE-SUN PHARMACEUTICAL INDUSTRIES LTD-2020RR-268767

PATIENT
  Age: 91 Year
  Sex: Male

DRUGS (9)
  1. SONIDEGIB [Suspect]
     Active Substance: SONIDEGIB
     Indication: Basal cell carcinoma
     Dosage: 200 MILLIGRAM, DAILY
     Route: 048
     Dates: start: 20201024, end: 20201103
  2. METFORMIN [Concomitant]
     Active Substance: METFORMIN HYDROCHLORIDE
     Indication: Pre-existing disease
     Dosage: 1000 MILLIGRAM, BID
     Route: 048
  3. OLMESARTAN [Concomitant]
     Active Substance: OLMESARTAN
     Indication: Pre-existing disease
     Dosage: 40 MILLIGRAM, DAILY
     Route: 048
     Dates: start: 2018
  4. AMLODIPINE BESYLATE [Concomitant]
     Active Substance: AMLODIPINE BESYLATE
     Indication: Pre-existing disease
     Dosage: 8 MILLIGRAM, DAILY
     Route: 048
     Dates: start: 2018
  5. METOPROLOL [Concomitant]
     Active Substance: METOPROLOL
     Indication: Pre-existing disease
     Dosage: 2375 MILLIGRAM, BID
     Route: 048
     Dates: start: 2018
  6. ELIQUIS [Concomitant]
     Active Substance: APIXABAN
     Indication: Pre-existing disease
     Dosage: 5 MILLIGRAM, DAILY
     Route: 048
     Dates: start: 2018
  7. FUROSEMIDE [Concomitant]
     Active Substance: FUROSEMIDE
     Indication: Adverse event
     Dosage: 40 MILLIGRAM, UNK
     Route: 042
     Dates: start: 20201110, end: 20201110
  8. Janosteril [Concomitant]
     Indication: Adverse event
     Dosage: 500 MILLIGRAM, UNK
     Route: 042
     Dates: start: 20201110, end: 20201110
  9. NIV [Concomitant]
     Indication: Adverse event
     Dosage: UNK, DAILY
     Dates: start: 20201110, end: 20201114

REACTIONS (7)
  - Dyspnoea [Recovered/Resolved]
  - Aortic arteriosclerosis [Unknown]
  - Anaemia [Unknown]
  - Pleural effusion [Unknown]
  - Aortic elongation [Unknown]
  - Pulmonary congestion [Unknown]
  - Cardiac failure [Unknown]

NARRATIVE: CASE EVENT DATE: 20201110
